FAERS Safety Report 20910906 (Version 1)
Quarter: 2022Q2

REPORT INFORMATION
  Report Type: Spontaneous
  Country: JP (occurrence: JP)
  Receive Date: 20220603
  Receipt Date: 20220603
  Transmission Date: 20220721
  Serious: Yes (Other)
  Sender: FDA-Public Use
  Company Number: JP-MEITHEAL-2022MPLIT00081

PATIENT
  Age: 62 Year
  Sex: Male

DRUGS (1)
  1. GEMCITABINE [Suspect]
     Active Substance: GEMCITABINE
     Indication: Cutaneous T-cell lymphoma
     Route: 065

REACTIONS (3)
  - Nephrotic syndrome [Recovering/Resolving]
  - Acute kidney injury [Recovering/Resolving]
  - Thrombotic microangiopathy [Recovering/Resolving]
